FAERS Safety Report 12104410 (Version 2)
Quarter: 2016Q1

REPORT INFORMATION
  Report Type: Spontaneous
  Country: IL (occurrence: IL)
  Receive Date: 20160223
  Receipt Date: 20160225
  Transmission Date: 20160526
  Serious: Yes (Hospitalization, Other)
  Sender: FDA-Public Use
  Company Number: IL-009507513-1601ISR000304

PATIENT
  Age: 69 Year
  Sex: Male

DRUGS (1)
  1. KEYTRUDA [Suspect]
     Active Substance: PEMBROLIZUMAB
     Indication: METASTATIC MALIGNANT MELANOMA
     Dosage: 2 CYCLES UNTIL NOW
     Dates: start: 20151104

REACTIONS (3)
  - Myopathy [Unknown]
  - Myasthenia gravis [Unknown]
  - Fatigue [Unknown]

NARRATIVE: CASE EVENT DATE: 201511
